FAERS Safety Report 8197078-9 (Version None)
Quarter: 2012Q1

REPORT INFORMATION
  Report Type: 
  Country: None (occurrence: None)
  Receive Date: 20120227
  Receipt Date: 20120104
  Transmission Date: 20120608
  Serious: Yes (Hospitalization)
  Sender: FDA-Public Use
  Company Number: 339915

PATIENT
  Age: 39 Year
  Sex: Male

DRUGS (7)
  1. VICTOZA [Suspect]
     Indication: TYPE 2 DIABETES MELLITUS
     Dosage: 1.2 MG, QD IN THE MORNING, SUBCUTANEOUS
     Route: 058
     Dates: end: 20111101
  2. LISINOPRIL [Concomitant]
  3. TRACOR (ADENOSINE) [Concomitant]
  4. SIMVASTATIN [Concomitant]
  5. ASPIRIN [Concomitant]
  6. METFORMIN HCL [Concomitant]
  7. OMEPRAZOLE [Concomitant]

REACTIONS (2)
  - DUODENITIS [None]
  - PANCREATITIS ACUTE [None]
